FAERS Safety Report 23302471 (Version 1)
Quarter: 2023Q4

REPORT INFORMATION
  Report Type: Spontaneous
  Country: US (occurrence: US)
  Receive Date: 20231215
  Receipt Date: 20231215
  Transmission Date: 20240109
  Serious: Yes (Hospitalization, Other)
  Sender: FDA-Public Use
  Company Number: US-FreseniusKabi-FK202320236

PATIENT
  Age: 11 Year
  Sex: Female

DRUGS (12)
  1. METHOTREXATE [Suspect]
     Active Substance: METHOTREXATE
     Indication: Acute lymphocytic leukaemia
     Dosage: THE PATIENT RECEIVED A LUMBAR PUNCTURE WITH INTRATHECAL METHOTREXATE ON DAYS 8 AND 29 OF EACH CYCLE.
     Route: 037
     Dates: end: 202105
  2. METHOTREXATE [Suspect]
     Active Substance: METHOTREXATE
     Indication: Acute lymphocytic leukaemia
     Dosage: WAS ON AND OFF ON CONVENTIONAL THERAPY DUE TO TOXICITIES
     Route: 065
     Dates: start: 201810, end: 2019
  3. CYTARABINE [Suspect]
     Active Substance: CYTARABINE
     Indication: Acute lymphocytic leukaemia
     Dates: start: 201810, end: 2019
  4. DAUNORUBICIN [Suspect]
     Active Substance: DAUNORUBICIN
     Indication: Acute lymphocytic leukaemia
     Dates: start: 201810, end: 2019
  5. BLINATUMOMAB [Suspect]
     Active Substance: BLINATUMOMAB
     Indication: Acute lymphocytic leukaemia
     Dosage: (15 MCG/M2/DAY) FOR TWO CYCLES (28 DAYS OF CONTINUOUS INFUSION FOLLOWED BY A 1-WEEK BREAK)??THERAPY
  6. BLINATUMOMAB [Suspect]
     Active Substance: BLINATUMOMAB
     Dosage: (15 MCG/M2/DAY, EACH CYCLE OF 35 DAYS WITH 28 DAYS?OF CONTINUOUS INFUSION) THAT WAS CONTINUED FOR AN
  7. VINCRISTINE [Suspect]
     Active Substance: VINCRISTINE
     Indication: Acute lymphocytic leukaemia
     Dates: start: 201810, end: 2019
  8. PREDNISONE [Suspect]
     Active Substance: PREDNISONE
     Indication: Acute lymphocytic leukaemia
     Dates: start: 201810, end: 2019
  9. PEGASPARGASE [Suspect]
     Active Substance: PEGASPARGASE
     Indication: Acute lymphocytic leukaemia
     Dates: start: 201810, end: 2019
  10. MERCAPTOPURINE [Suspect]
     Active Substance: MERCAPTOPURINE
     Indication: Acute lymphocytic leukaemia
     Dates: start: 201810, end: 2019
  11. CYCLOPHOSPHAMIDE [Suspect]
     Active Substance: CYCLOPHOSPHAMIDE
     Indication: Acute lymphocytic leukaemia
     Dates: start: 201810, end: 2019
  12. DEXAMETHASONE [Concomitant]
     Active Substance: DEXAMETHASONE
     Indication: Pyrexia
     Dates: start: 201812, end: 201812

REACTIONS (15)
  - Febrile neutropenia [Recovered/Resolved]
  - Cryptococcal fungaemia [Recovered/Resolved]
  - Syncope [Recovered/Resolved]
  - Cardiopulmonary failure [Recovered/Resolved]
  - Renal failure [Recovered/Resolved]
  - Ventricular arrhythmia [Recovered/Resolved]
  - Torsade de pointes [Recovered/Resolved]
  - Pseudomonal sepsis [Unknown]
  - Aspergillus infection [Unknown]
  - Myelosuppression [Unknown]
  - Neurotoxicity [Recovered/Resolved]
  - Partial seizures [Recovered/Resolved]
  - Hypertension [Recovered/Resolved]
  - Asthenia [Recovering/Resolving]
  - Mobility decreased [Recovering/Resolving]

NARRATIVE: CASE EVENT DATE: 20181001
